FAERS Safety Report 9175127 (Version 2)
Quarter: 2013Q2

REPORT INFORMATION
  Report Type: Report from Study
  Country: US (occurrence: US)
  Receive Date: 20130320
  Receipt Date: 20130423
  Transmission Date: 20140414
  Serious: Yes (Hospitalization, Other)
  Sender: FDA-Public Use
  Company Number: US-ABBOTT-13P-163-1062110-00

PATIENT
  Age: 65 Year
  Sex: Female
  Weight: 103.51 kg

DRUGS (8)
  1. HUMIRA PEN [Suspect]
     Indication: RHEUMATOID ARTHRITIS
     Dates: start: 2010, end: 20130124
  2. HUMIRA PEN [Suspect]
     Dates: start: 20130311
  3. METHOTREXATE [Concomitant]
     Indication: RHEUMATOID ARTHRITIS
  4. METHOTREXATE [Concomitant]
     Dates: start: 2010, end: 201301
  5. METHOTREXATE [Concomitant]
     Dates: start: 201302
  6. COZAAR [Concomitant]
     Indication: HYPERTENSION
  7. CELEBREX [Concomitant]
     Indication: RHEUMATOID ARTHRITIS
     Dates: end: 20130124
  8. CELEBREX [Concomitant]
     Dates: start: 201302

REACTIONS (14)
  - Salivary gland calculus [Recovered/Resolved]
  - Nerve injury [Recovered/Resolved]
  - Ear pain [Recovered/Resolved]
  - Salivary duct obstruction [Recovered/Resolved]
  - Local swelling [Recovered/Resolved]
  - Dyspnoea [Recovered/Resolved]
  - Pulmonary embolism [Recovered/Resolved]
  - Pneumonia [Recovered/Resolved]
  - Peripheral embolism [Recovered/Resolved]
  - Pleuritic pain [Recovered/Resolved]
  - Rheumatoid arthritis [Not Recovered/Not Resolved]
  - Gait disturbance [Not Recovered/Not Resolved]
  - Mobility decreased [Not Recovered/Not Resolved]
  - Rhinorrhoea [Recovered/Resolved]
